FAERS Safety Report 24581711 (Version 1)
Quarter: 2024Q4

REPORT INFORMATION
  Report Type: Spontaneous
  Country: US (occurrence: US)
  Receive Date: 20241105
  Receipt Date: 20241105
  Transmission Date: 20250114
  Serious: No
  Sender: MARINUS PHARMACEUTICALS
  Company Number: US-MARINUS PHARMACEUTICALS, INC.-MAR2024000219

PATIENT

DRUGS (4)
  1. ZTALMY [Suspect]
     Active Substance: GANAXOLONE
     Indication: Product used for unknown indication
     Dosage: 6 MILLILITER, TID, WEEK 4
     Route: 048
  2. ZTALMY [Suspect]
     Active Substance: GANAXOLONE
     Dosage: 1.6 MILLILITER, TID, WEEK 1
     Route: 048
  3. ZTALMY [Suspect]
     Active Substance: GANAXOLONE
     Dosage: 3 MILLILITER, TID, WEEK 2
     Route: 048
  4. ZTALMY [Suspect]
     Active Substance: GANAXOLONE
     Dosage: 4.4 MILLILITER, TID, WEEK 3
     Route: 048

REACTIONS (2)
  - Rash [Unknown]
  - Pyrexia [Unknown]

NARRATIVE: CASE EVENT DATE: 20240101
